FAERS Safety Report 8275836-X (Version None)
Quarter: 2012Q2

REPORT INFORMATION
  Report Type: 
  Country: None (occurrence: None)
  Receive Date: 20120410
  Receipt Date: 20120410
  Transmission Date: 20120825
  Serious: No
  Sender: FDA-Public Use
  Company Number: None

PATIENT
  Sex: Female

DRUGS (3)
  1. VICTRELIS [Concomitant]
  2. RIBAVIRIN [Suspect]
     Dosage: 600MG BID PO
     Route: 048
     Dates: start: 20111222
  3. PEGASYS [Suspect]
     Dosage: 180MCG QWEEK SUBQ
     Route: 058
     Dates: start: 20111222

REACTIONS (8)
  - GASTROOESOPHAGEAL REFLUX DISEASE [None]
  - MOUTH ULCERATION [None]
  - IMPAIRED WORK ABILITY [None]
  - CHILLS [None]
  - VOMITING [None]
  - PYREXIA [None]
  - NAUSEA [None]
  - DIARRHOEA [None]
